FAERS Safety Report 5690058-4 (Version None)
Quarter: 2008Q1

REPORT INFORMATION
  Report Type: 
  Country: None (occurrence: None)
  Receive Date: 20080331
  Receipt Date: 20080331
  Transmission Date: 20080703
  Serious: No
  Sender: FDA-Public Use
  Company Number: None

PATIENT
  Sex: Female
  Weight: 31.7518 kg

DRUGS (1)
  1. SINGULAIR [Suspect]
     Indication: HYPERSENSITIVITY
     Dosage: 1 TABLET AT NIGHT PO
     Route: 048
     Dates: start: 20040101, end: 20080327

REACTIONS (5)
  - ABNORMAL BEHAVIOUR [None]
  - DECREASED INTEREST [None]
  - EDUCATIONAL PROBLEM [None]
  - THINKING ABNORMAL [None]
  - TREMOR [None]
